FAERS Safety Report 8924575 (Version 1)
Quarter: 2012Q4

REPORT INFORMATION
  Report Type: 
  Country: US (occurrence: US)
  Receive Date: 20121126
  Receipt Date: 20121126
  Transmission Date: 20130627
  Serious: No
  Sender: FDA-Public Use
  Company Number: US-PFIZER INC-2012294980

PATIENT
  Age: 67 Year
  Sex: Male
  Weight: 94.33 kg

DRUGS (4)
  1. LYRICA [Suspect]
     Indication: TESTICULAR PAIN
     Dosage: 75 mg, 2x/day
     Route: 048
     Dates: start: 201209, end: 201211
  2. METFORMIN [Concomitant]
     Indication: DIABETES
     Dosage: 500 mg, 2x/day
  3. NIFEDIPINE [Concomitant]
     Indication: BLOOD PRESSURE HIGH
     Dosage: 30 mg, daily
  4. METOPROLOL [Concomitant]
     Indication: BLOOD PRESSURE HIGH
     Dosage: 25 mg, 2x/day

REACTIONS (4)
  - Drug ineffective [Unknown]
  - Oropharyngeal pain [Not Recovered/Not Resolved]
  - Neck pain [Not Recovered/Not Resolved]
  - Off label use [Unknown]
